FAERS Safety Report 6716503-0 (Version None)
Quarter: 2010Q2

REPORT INFORMATION
  Report Type: 
  Country: None (occurrence: None)
  Receive Date: 20100507
  Receipt Date: 20100426
  Transmission Date: 20101027
  Serious: Yes (Other)
  Sender: FDA-Public Use
  Company Number: ES-ELI_LILLY_AND_COMPANY-ES201004007014

PATIENT
  Sex: Female
  Weight: 60 kg

DRUGS (9)
  1. FORTEO [Suspect]
     Indication: OSTEOPOROSIS
     Dosage: 20 UG, DAILY (1/D)
     Route: 058
     Dates: start: 20090301, end: 20090901
  2. DUPHALAC [Concomitant]
     Indication: CONSTIPATION
     Dosage: 1-2 SACHETS, DAILY (1/D)
     Route: 048
     Dates: start: 20090901
  3. CIDINE [Concomitant]
     Dosage: 1 MG, EVERY 8 HRS
     Route: 048
     Dates: start: 20090901
  4. OMEPRAZOLE [Concomitant]
     Indication: HIATUS HERNIA
     Dosage: 20 MG, DAILY (1/D)
     Route: 048
     Dates: start: 20090901
  5. PARACETAMOL [Concomitant]
     Indication: PAIN
     Dosage: 650 MG, DAILY (1/D)
     Route: 048
  6. FOLI DOCE [Concomitant]
     Indication: ANAEMIA
     Dosage: 2 D/F, DAILY (1/D)
     Route: 048
     Dates: start: 20090901
  7. BESTER [Concomitant]
     Indication: ANAEMIA
     Dosage: UNK, DAILY (1/D)
     Route: 048
     Dates: start: 20090901
  8. PROTELOS [Concomitant]
     Indication: OSTEOPOROSIS
     Dosage: 2 G, DAILY (1/D)
     Route: 048
     Dates: start: 20090901, end: 20091001
  9. CRESTOR [Concomitant]
     Dosage: 10 MG, DAILY (1/D)
     Route: 048
     Dates: start: 20100401

REACTIONS (4)
  - ANAEMIA [None]
  - GASTROINTESTINAL DISORDER [None]
  - HIATUS HERNIA [None]
  - WEIGHT DECREASED [None]
